FAERS Safety Report 10207045 (Version 1)
Quarter: 2014Q2

REPORT INFORMATION
  Report Type: Spontaneous
  Country: US (occurrence: None)
  Receive Date: 20140527
  Receipt Date: 20140527
  Transmission Date: 20141212
  Serious: Yes (Hospitalization)
  Sender: FDA-Public Use
  Company Number: UCM201405-000081

PATIENT
  Age: 71 Year
  Sex: Female

DRUGS (2)
  1. BUPROPION (BUPROPION) (BUPROPION) [Suspect]
  2. LAMOTRIGINE (LAMOTRIGINE) (LAMOTRIGINE) [Suspect]

REACTIONS (6)
  - Status epilepticus [None]
  - Electrocardiogram QT prolonged [None]
  - Intentional overdose [None]
  - Unresponsive to stimuli [None]
  - Cardiotoxicity [None]
  - Neurotoxicity [None]
